FAERS Safety Report 6234101-2 (Version None)
Quarter: 2009Q2

REPORT INFORMATION
  Report Type: 
  Country: None (occurrence: None)
  Receive Date: 20090616
  Receipt Date: 20090616
  Transmission Date: 20091009
  Serious: Yes (Disabling)
  Sender: FDA-Public Use
  Company Number: None

PATIENT

DRUGS (2)
  1. REQUIP XL [Suspect]
     Indication: DEMENTIA
     Dosage: XL 2 MGS Q AM Q AM PO
     Route: 048
  2. REQUIP XL [Suspect]
     Indication: RESTLESS LEGS SYNDROME
     Dosage: XL 2 MGS Q AM Q AM PO
     Route: 048

REACTIONS (1)
  - NO ADVERSE EVENT [None]
